FAERS Safety Report 15472088 (Version 3)
Quarter: 2021Q2

REPORT INFORMATION
  Report Type: Report from Study
  Country: GB (occurrence: GB)
  Receive Date: 20181008
  Receipt Date: 20210619
  Transmission Date: 20210716
  Serious: Yes (Hospitalization)
  Sender: FDA-Public Use
  Company Number: GB-ROCHE-2120973

PATIENT
  Age: 73 Year
  Sex: Male
  Weight: 76 kg

DRUGS (3)
  1. TRASTUZUMAB. [Concomitant]
     Active Substance: TRASTUZUMAB
     Indication: HER2 POSITIVE GASTRIC CANCER
     Dosage: DATE OF LAST DOSE PROIR TO SAE: 20/APR/2018
     Route: 041
     Dates: start: 20170817
  2. CAPECITABINE. [Suspect]
     Active Substance: CAPECITABINE
     Indication: HER2 POSITIVE GASTRIC CANCER
     Dosage: DATE OF LAST DOSE PROIR TO SAE: 11/JAN/2018
     Route: 048
     Dates: start: 20170707
  3. CISPLATIN. [Suspect]
     Active Substance: CISPLATIN
     Indication: HER2 POSITIVE GASTRIC CANCER
     Dosage: DATE OF LAST DOSE PROIR TO SAE: 29/DEC/2017
     Route: 065
     Dates: start: 20170707

REACTIONS (1)
  - Wound dehiscence [Recovering/Resolving]

NARRATIVE: CASE EVENT DATE: 20171005
